FAERS Safety Report 16111547 (Version 2)
Quarter: 2019Q2

REPORT INFORMATION
  Report Type: Spontaneous
  Country: US (occurrence: US)
  Receive Date: 20190325
  Receipt Date: 20190618
  Transmission Date: 20190711
  Serious: Yes (Other)
  Sender: FDA-Public Use
  Company Number: US-ASTRAZENECA-2018SF13632

PATIENT
  Sex: Male
  Weight: 102.1 kg

DRUGS (18)
  1. ALLOPURINOL. [Concomitant]
     Active Substance: ALLOPURINOL
     Indication: GOUT
  2. TRAMADOL. [Concomitant]
     Active Substance: TRAMADOL
  3. AMOXICILLIN. [Concomitant]
     Active Substance: AMOXICILLIN
  4. NEXIUM [Suspect]
     Active Substance: ESOMEPRAZOLE MAGNESIUM
     Indication: GASTROOESOPHAGEAL REFLUX DISEASE
     Route: 048
     Dates: start: 2000, end: 2014
  5. TYLENOL [Concomitant]
     Active Substance: ACETAMINOPHEN
  6. ZANTAC [Concomitant]
     Active Substance: RANITIDINE HYDROCHLORIDE
  7. DIOVAN [Concomitant]
     Active Substance: VALSARTAN
  8. NEXIUM 24HR [Suspect]
     Active Substance: ESOMEPRAZOLE MAGNESIUM
     Route: 048
     Dates: start: 2000, end: 2014
  9. LANSOPRAZOLE. [Suspect]
     Active Substance: LANSOPRAZOLE
     Indication: GASTROOESOPHAGEAL REFLUX DISEASE
     Route: 065
  10. SIMVASTATIN. [Concomitant]
     Active Substance: SIMVASTATIN
  11. ALLOPURINOL. [Concomitant]
     Active Substance: ALLOPURINOL
  12. ZOLPIDEM [Concomitant]
     Active Substance: ZOLPIDEM\ZOLPIDEM TARTRATE
  13. CEPHALEXIN. [Concomitant]
     Active Substance: CEPHALEXIN
  14. VALSARTAN. [Concomitant]
     Active Substance: VALSARTAN
  15. ENALAPRIL [Concomitant]
     Active Substance: ENALAPRIL
     Indication: BLOOD PRESSURE MEASUREMENT
  16. LOSARTAN. [Concomitant]
     Active Substance: LOSARTAN
  17. LEVAQUIN [Concomitant]
     Active Substance: LEVOFLOXACIN
  18. AMLODIPINE [Concomitant]
     Active Substance: AMLODIPINE BESYLATE

REACTIONS (1)
  - Chronic kidney disease [Not Recovered/Not Resolved]
